FAERS Safety Report 6121173-9 (Version None)
Quarter: 2009Q1

REPORT INFORMATION
  Report Type: 
  Country: None (occurrence: None)
  Receive Date: 20090317
  Receipt Date: 20090312
  Transmission Date: 20090719
  Serious: Yes (Death)
  Sender: FDA-Public Use
  Company Number: B0565249A

PATIENT
  Age: 12 Month
  Sex: Female
  Weight: 6.4 kg

DRUGS (7)
  1. ZIDOVUDINE [Suspect]
     Indication: HIV INFECTION
     Dosage: 120MG TWICE PER DAY
     Route: 048
     Dates: start: 20090116, end: 20090208
  2. LAMIVUDINE [Suspect]
     Indication: HIV INFECTION
     Dosage: 40MG TWICE PER DAY
     Route: 048
     Dates: start: 20090116, end: 20090208
  3. KALETRA [Suspect]
     Indication: HIV INFECTION
     Dosage: 160MG TWICE PER DAY
     Route: 048
     Dates: start: 20090116, end: 20090208
  4. MULTI-VITAMIN [Concomitant]
  5. COTRIMOXAZOLE [Concomitant]
  6. ACETAMINOPHEN [Concomitant]
  7. MICONAZOLE [Concomitant]

REACTIONS (2)
  - ANAEMIA [None]
  - CARDIAC FAILURE CONGESTIVE [None]
